FAERS Safety Report 6581422-X (Version None)
Quarter: 2010Q1

REPORT INFORMATION
  Report Type: 
  Country: None (occurrence: None)
  Receive Date: 20100215
  Receipt Date: 20100204
  Transmission Date: 20100710
  Serious: Yes (Hospitalization)
  Sender: FDA-Public Use
  Company Number: A0834886A

PATIENT
  Sex: Female
  Weight: 49 kg

DRUGS (4)
  1. ELTROMBOPAG [Suspect]
     Indication: THROMBOCYTOPENIA
     Dosage: 25MG PER DAY
     Route: 048
     Dates: start: 20090608, end: 20090622
  2. PLACEBO [Suspect]
     Indication: THROMBOCYTOPENIA
     Route: 048
     Dates: start: 20090623
  3. PEG-INTRON [Suspect]
     Indication: HEPATITIS C
     Dosage: 80MCG WEEKLY
     Route: 058
     Dates: start: 20090623
  4. REBETOL [Suspect]
     Indication: HEPATITIS C
     Route: 048
     Dates: start: 20090623

REACTIONS (1)
  - TIBIA FRACTURE [None]
